FAERS Safety Report 5335901-3 (Version None)
Quarter: 2007Q1

REPORT INFORMATION
  Report Type: 
  Country: None (occurrence: None)
  Receive Date: 20070301
  Receipt Date: 20061108
  Transmission Date: 20070707
  Serious: Yes (Other)
  Sender: FDA-Public Use
  Company Number: 2006111826

PATIENT
  Age: 42 Year
  Sex: Female

DRUGS (2)
  1. RELPAX [Suspect]
     Indication: HEADACHE
  2. RELPAX [Suspect]
     Indication: MIGRAINE

REACTIONS (2)
  - ATRIAL FIBRILLATION [None]
  - CHEST DISCOMFORT [None]
